FAERS Safety Report 22266979 (Version 1)
Quarter: 2023Q2

REPORT INFORMATION
  Report Type: Spontaneous
  Country: US (occurrence: US)
  Receive Date: 20230428
  Receipt Date: 20230428
  Transmission Date: 20230722
  Serious: Yes (Other)
  Sender: FDA-Public Use
  Company Number: US-FreseniusKabi-FK202305621

PATIENT
  Age: 5 Year
  Sex: Male

DRUGS (15)
  1. DEXAMETHASONE [Suspect]
     Active Substance: DEXAMETHASONE
     Indication: Acute lymphocytic leukaemia
     Dosage: PART OF MINI-HYPER-CVD  PLUS CRIB RE-INDUCTION REGIMEN?20 MG/M2 PER DAY, DIVIDED INTO 1?2 DOSES/DAY
  2. METHOTREXATE [Suspect]
     Active Substance: METHOTREXATE
     Indication: Acute lymphocytic leukaemia
     Dosage: PART OF MINI-HYPER-CVD  PLUS CRIB RE-INDUCTION REGIMEN?D2 (? 3 DAYS)
     Route: 037
  3. CYTARABINE [Suspect]
     Active Substance: CYTARABINE
     Indication: Acute lymphocytic leukaemia
     Dosage: PART OF MINI-HYPER-CVD  PLUS CRIB RE-INDUCTION REGIMEN?ON DAY 8
     Route: 037
  4. CYCLOPHOSPHAMIDE [Suspect]
     Active Substance: CYCLOPHOSPHAMIDE
     Indication: Acute lymphocytic leukaemia
     Dosage: PART OF MINI-HYPER-CVD  PLUS CRIB RE-INDUCTION REGIMEN?150 MG/M2 EVERY 12 H?FOR SIX DOSES, IV, D1 TO
     Route: 042
  5. VINCRISTINE [Suspect]
     Active Substance: VINCRISTINE
     Indication: Acute lymphocytic leukaemia
     Dosage: PART OF MINI-HYPER-CVD  PLUS CRIB RE-INDUCTION REGIMEN?1.5 MG/M2 (MAX 2 MG) DAY1 TO DAY8
     Route: 042
  6. RITUXIMAB [Suspect]
     Active Substance: RITUXIMAB
     Indication: Acute lymphocytic leukaemia
     Dosage: PART OF MINI-HYPER-CVD  PLUS CRIB RE-INDUCTION REGIMEN?375 MG/M2 (DAY 2 AND DAY 8)
     Route: 042
  7. INOTUZUMAB OZOGAMICIN [Suspect]
     Active Substance: INOTUZUMAB OZOGAMICIN
     Indication: Acute lymphocytic leukaemia
     Dosage: PART OF MINI-HYPER-CVD  PLUS CRIB RE-INDUCTION REGIMEN?0.6 MG/M2, D2
     Route: 042
  8. INOTUZUMAB OZOGAMICIN [Suspect]
     Active Substance: INOTUZUMAB OZOGAMICIN
     Dosage: PART OF MINI-HYPER-CVD  PLUS CRIB RE-INDUCTION REGIMEN?0.3 MG/M2, D8 AND D23
     Route: 042
  9. BLINATUMOMAB [Suspect]
     Active Substance: BLINATUMOMAB
     Indication: Acute lymphocytic leukaemia
     Dosage: 5 ?G/M2 PER DAY?D17 CONTINUOUS UNTIL D20
     Route: 042
  10. BLINATUMOMAB [Suspect]
     Active Substance: BLINATUMOMAB
     Dosage: 15 ?G/M2 PER DAY?D21 CONTINUOUS UNTIL D28
     Route: 042
  11. VALACYCLOVIR [Concomitant]
     Active Substance: VALACYCLOVIR HYDROCHLORIDE
     Indication: Prophylaxis
  12. VORICONAZOLE [Concomitant]
     Active Substance: VORICONAZOLE
     Indication: Prophylaxis
  13. PENTAMIDINE [Concomitant]
     Active Substance: PENTAMIDINE
     Indication: Prophylaxis
  14. LEVOFLOXACIN [Concomitant]
     Active Substance: LEVOFLOXACIN
     Indication: Prophylaxis
     Dosage: WHEN HIS ABSOLUTE NEUTROPHIL CELL COUNT WAS { 500/?
  15. URSODIOL [Concomitant]
     Active Substance: URSODIOL
     Indication: Evidence based treatment
     Dosage: AT THE START OF THE CYCLE

REACTIONS (5)
  - Thrombocytopenia [Recovering/Resolving]
  - Neutropenia [Recovering/Resolving]
  - Hyperphosphataemia [Recovering/Resolving]
  - Anaemia [Recovering/Resolving]
  - Hyperglycaemia [Unknown]
